FAERS Safety Report 7075414-4 (Version None)
Quarter: 2010Q4

REPORT INFORMATION
  Report Type: 
  Country: None (occurrence: None)
  Receive Date: 20101030
  Receipt Date: 20100913
  Transmission Date: 20110411
  Serious: No
  Sender: FDA-Public Use
  Company Number: US-WYE-H17491810

PATIENT
  Sex: Female

DRUGS (3)
  1. PRISTIQ [Suspect]
     Indication: ANXIETY
     Dates: start: 20100101, end: 20100101
  2. PRISTIQ [Suspect]
     Dosage: ^CUT BACK TO 1/4 PILL OF PRISTIQ^
     Dates: start: 20100101
  3. ASCORBIC ACID [Concomitant]

REACTIONS (5)
  - CONSTIPATION [None]
  - HEADACHE [None]
  - INTENTIONAL DRUG MISUSE [None]
  - NAUSEA [None]
  - THERAPEUTIC RESPONSE UNEXPECTED [None]
